FAERS Safety Report 10661433 (Version 2)
Quarter: 2014Q4

REPORT INFORMATION
  Report Type: Spontaneous
  Country: DE (occurrence: None)
  Receive Date: 20141216
  Receipt Date: 20141223
  Transmission Date: 20150529
  Serious: Yes (Death, Life-Threatening, Hospitalization)
  Sender: FDA-Public Use
  Company Number: TH-2014-4764

PATIENT
  Age: 60 Year
  Sex: Female

DRUGS (6)
  1. NAVELBINE [Suspect]
     Active Substance: VINORELBINE TARTRATE
     Indication: BREAST CANCER
  2. LORATADINE. [Concomitant]
     Active Substance: LORATADINE
  3. AFATINIB [Suspect]
     Active Substance: AFATINIB
     Indication: BREAST CANCER
     Route: 048
     Dates: start: 20130422, end: 20140817
  4. TRIAMCINOLON ACETONIDE CREAM [Concomitant]
  5. WARFARIN (WARFARIN SODIUM) [Concomitant]
  6. AMLODIPINE (AMLODIPINE MESILATE) [Concomitant]

REACTIONS (8)
  - Amnesia [None]
  - Anaemia [None]
  - Hypokalaemia [None]
  - Fatigue [None]
  - Headache [None]
  - Metastases to central nervous system [None]
  - Pyrexia [None]
  - Drug ineffective [None]

NARRATIVE: CASE EVENT DATE: 20140206
